FAERS Safety Report 11909893 (Version 13)
Quarter: 2017Q4

REPORT INFORMATION
  Report Type: Spontaneous
  Country: GB (occurrence: GB)
  Receive Date: 20160112
  Receipt Date: 20171122
  Transmission Date: 20180320
  Serious: Yes (Hospitalization, Other)
  Sender: FDA-Public Use
  Company Number: GB-TAKEDA-2016MPI000091

PATIENT
  Age: 79 Year
  Sex: Female
  Weight: 76 kg

DRUGS (71)
  1. VELCADE [Suspect]
     Active Substance: BORTEZOMIB
     Indication: PLASMA CELL MYELOMA
     Dosage: 2.25 MG, UNK
     Route: 058
     Dates: start: 20151201
  2. VELCADE [Suspect]
     Active Substance: BORTEZOMIB
     Dosage: UNK
     Route: 058
     Dates: start: 20160101
  3. DARATUMUMAB [Suspect]
     Active Substance: DARATUMUMAB
     Indication: PLASMA CELL MYELOMA
     Dosage: 1220 MG, UNK
     Route: 042
     Dates: start: 20151201, end: 20160101
  4. PARACETAMOL [Concomitant]
     Active Substance: ACETAMINOPHEN
     Indication: ARTHRALGIA
     Dosage: 1 G, UNK
     Route: 048
     Dates: start: 20160101
  5. ACICLOVIR [Concomitant]
     Active Substance: ACYCLOVIR
     Indication: ANTIVIRAL PROPHYLAXIS
     Dosage: 400 MG, QD
     Route: 048
     Dates: start: 20151201
  6. ACICLOVIR [Concomitant]
     Active Substance: ACYCLOVIR
     Dosage: 400 MG, BID
     Route: 048
  7. ALLOPURINOL. [Concomitant]
     Active Substance: ALLOPURINOL
     Indication: GOUT
     Dosage: 300 MG, QD
     Route: 048
     Dates: start: 20151201
  8. SULFAMETHOXAZOLE AND TRIMETHOPRIM [Concomitant]
     Active Substance: SULFAMETHOXAZOLE\TRIMETHOPRIM
     Dosage: UNK, QD
     Route: 048
  9. AMOXICILLIN AND CLAVULANATE POTASSIUM [Concomitant]
     Active Substance: AMOXICILLIN\CLAVULANATE POTASSIUM
     Indication: INFECTION PROPHYLAXIS
     Dosage: UNK
     Route: 048
  10. MORPHINE SULPHATE [Concomitant]
     Active Substance: MORPHINE SULFATE
     Indication: ARTHRALGIA
     Dosage: 10 MG, BID
     Route: 048
     Dates: start: 20160308
  11. VELCADE [Suspect]
     Active Substance: BORTEZOMIB
     Dosage: 2.25 MG, UNK
     Route: 058
     Dates: start: 20160119
  12. PREDNISONE. [Suspect]
     Active Substance: PREDNISONE
     Indication: PLASMA CELL MYELOMA
     Dosage: 105 MG, UNK
     Route: 048
     Dates: start: 20151202, end: 20151204
  13. PREDNISONE. [Suspect]
     Active Substance: PREDNISONE
     Dosage: 105 MG, UNK
     Route: 048
     Dates: start: 20160224, end: 20160226
  14. DEXAMETHASONE. [Suspect]
     Active Substance: DEXAMETHASONE
     Indication: PLASMA CELL MYELOMA
     Dosage: 20 MG, UNK
     Route: 065
     Dates: start: 20151201, end: 20151201
  15. SODIUM CHLORIDE. [Concomitant]
     Active Substance: SODIUM CHLORIDE
     Indication: INFECTION
     Dosage: 1000 ML, UNK
     Route: 042
     Dates: start: 20160101, end: 20160102
  16. CO-AMOXICLAVE [Concomitant]
     Active Substance: AMOXICILLIN\CLAVULANATE POTASSIUM
     Indication: INFECTION PROPHYLAXIS
     Dosage: 1.2 G, UNK
     Route: 042
     Dates: start: 20160101, end: 20160101
  17. PREDNISONE. [Suspect]
     Active Substance: PREDNISONE
     Dosage: 105 MG, UNK
     Route: 048
     Dates: start: 20160114, end: 20160116
  18. MELPHALAN. [Suspect]
     Active Substance: MELPHALAN
     Dosage: UNK
     Route: 048
  19. PIRITON [Concomitant]
     Active Substance: CHLORPHENIRAMINE MALEATE
     Indication: EYE PRURITUS
     Dosage: 10 MG, UNK
     Route: 048
     Dates: start: 20151201, end: 20151201
  20. MORPHINE SULPHATE [Concomitant]
     Active Substance: MORPHINE SULFATE
     Dosage: 5 MG, UNK
     Route: 048
     Dates: start: 20160309, end: 20160311
  21. VELCADE [Suspect]
     Active Substance: BORTEZOMIB
     Dosage: 2.25 MG, UNK
     Route: 058
     Dates: start: 20151208
  22. VELCADE [Suspect]
     Active Substance: BORTEZOMIB
     Dosage: 2.25 MG, UNK
     Route: 058
     Dates: start: 20151222
  23. VELCADE [Suspect]
     Active Substance: BORTEZOMIB
     Dosage: 2.25 MG, UNK
     Route: 058
     Dates: start: 20160202
  24. VELCADE [Suspect]
     Active Substance: BORTEZOMIB
     Dosage: 2.25 MG, UNK
     Route: 058
     Dates: start: 20160405
  25. DARATUMUMAB [Suspect]
     Active Substance: DARATUMUMAB
     Dosage: 1220 MG, UNK
     Route: 042
  26. AMLODIPINE [Concomitant]
     Active Substance: AMLODIPINE BESYLATE
     Indication: HYPERTENSION
     Dosage: 10 MG, QD
     Route: 048
  27. PARACETAMOL [Concomitant]
     Active Substance: ACETAMINOPHEN
     Indication: INFECTION
     Dosage: 1 G, QID
     Route: 048
     Dates: start: 2005, end: 20160101
  28. DOXAZOSIN [Concomitant]
     Active Substance: DOXAZOSIN\DOXAZOSIN MESYLATE
     Indication: HYPERTENSION
     Dosage: 1 MG, QD
     Route: 048
  29. DIHYDROCODEINE [Concomitant]
     Active Substance: DIHYDROCODEINE
     Indication: ARTHRALGIA
     Dosage: UNK, QID
     Route: 048
     Dates: start: 20150225
  30. LACTULOSE. [Concomitant]
     Active Substance: LACTULOSE
     Dosage: 10 ML, UNK
     Route: 048
     Dates: start: 20160316
  31. TAZOCIN [Concomitant]
     Active Substance: PIPERACILLIN SODIUM\TAZOBACTAM SODIUM
     Indication: PNEUMONIA
     Dosage: 4.5 G, UNK
     Route: 042
     Dates: start: 20160107, end: 20160107
  32. TAZOCIN [Concomitant]
     Active Substance: PIPERACILLIN SODIUM\TAZOBACTAM SODIUM
     Dosage: 4.5 G, UNK
     Route: 042
     Dates: start: 20160316, end: 20160316
  33. SODIUM CHLORIDE. [Concomitant]
     Active Substance: SODIUM CHLORIDE
     Indication: SEPSIS
     Dosage: 1000 ML, UNK
     Route: 042
     Dates: start: 20160308, end: 20160308
  34. CLARITHROMYCIN. [Concomitant]
     Active Substance: CLARITHROMYCIN
     Indication: PNEUMONIA
  35. SEPTRIN [Concomitant]
     Active Substance: SULFAMETHOXAZOLE\TRIMETHOPRIM
     Indication: INFECTION PROPHYLAXIS
     Dosage: 480 MG, QD
     Route: 048
     Dates: start: 201602
  36. VELCADE [Suspect]
     Active Substance: BORTEZOMIB
     Dosage: 2.25 MG, UNK
     Route: 058
     Dates: start: 20151204
  37. VELCADE [Suspect]
     Active Substance: BORTEZOMIB
     Dosage: 2.25 MG, UNK
     Route: 058
     Dates: start: 20160209
  38. VELCADE [Suspect]
     Active Substance: BORTEZOMIB
     Dosage: 2.25 MG, UNK
     Route: 058
     Dates: start: 20160223
  39. MELPHALAN. [Suspect]
     Active Substance: MELPHALAN
     Dosage: 12 MG, UNK
     Route: 048
     Dates: start: 20160113, end: 20160116
  40. DIHYDROCODEINE TARTRATE [Concomitant]
     Active Substance: DIHYDROCODEINE BITARTRATE
     Dosage: UNK
     Route: 048
     Dates: start: 20160105
  41. MORPHINE SULPHATE [Concomitant]
     Active Substance: MORPHINE SULFATE
     Dosage: 5 MG, UNK
     Route: 048
     Dates: start: 20160316
  42. SEPTRIN [Suspect]
     Active Substance: SULFAMETHOXAZOLE\TRIMETHOPRIM
     Indication: PRODUCT USED FOR UNKNOWN INDICATION
     Dosage: 490 MG, QD
     Route: 048
  43. CO-DYDRAMOL [Concomitant]
     Active Substance: ACETAMINOPHEN\DIHYDROCODEINE
     Indication: ARTHRALGIA
     Dosage: UNK UNK, QID
     Route: 048
     Dates: start: 2015
  44. TAZOCIN [Concomitant]
     Active Substance: PIPERACILLIN SODIUM\TAZOBACTAM SODIUM
     Dosage: 4.5 G, TID
     Route: 042
     Dates: start: 20160308, end: 20160315
  45. SODIUM CHLORIDE. [Concomitant]
     Active Substance: SODIUM CHLORIDE
     Indication: PNEUMONIA
  46. BENDROFLUMETHIAZIDE [Concomitant]
     Active Substance: BENDROFLUMETHIAZIDE
     Indication: HYPERTENSION
     Dosage: 2.5 MG, UNK
     Route: 048
  47. METOCLOPRAMIDE HYDROCHLORIDE. [Concomitant]
     Active Substance: METOCLOPRAMIDE HYDROCHLORIDE
     Dosage: 10 MG, UNK
     Route: 048
     Dates: start: 20160105
  48. CO-AMOXICLAVE [Concomitant]
     Active Substance: AMOXICILLIN\CLAVULANATE POTASSIUM
     Dosage: 1.2 G, TID
     Route: 042
     Dates: start: 20160102, end: 20160104
  49. FUROSEMIDE. [Concomitant]
     Active Substance: FUROSEMIDE
     Indication: OEDEMA PERIPHERAL
     Dosage: 40 MG, QD
     Route: 048
     Dates: start: 20160202
  50. VELCADE [Suspect]
     Active Substance: BORTEZOMIB
     Dosage: 2.25 MG, UNK
     Route: 058
     Dates: start: 20151211
  51. VELCADE [Suspect]
     Active Substance: BORTEZOMIB
     Dosage: 2.25 MG, UNK
     Route: 058
     Dates: start: 20151225
  52. VELCADE [Suspect]
     Active Substance: BORTEZOMIB
     Dosage: 2.25 MG, UNK
     Route: 058
     Dates: start: 20160301
  53. MELPHALAN. [Suspect]
     Active Substance: MELPHALAN
     Indication: PLASMA CELL MYELOMA
     Dosage: 16 MG, UNK
     Route: 048
     Dates: start: 20151201, end: 20151204
  54. MELPHALAN. [Suspect]
     Active Substance: MELPHALAN
     Dosage: 8 MG, UNK
     Route: 048
     Dates: start: 20160223, end: 20160226
  55. LANSOPRAZOLE. [Concomitant]
     Active Substance: LANSOPRAZOLE
     Dosage: 30 MG, UNK
     Route: 048
  56. AMLODIPINE [Concomitant]
     Active Substance: AMLODIPINE BESYLATE
     Dosage: 5 MG, UNK
     Route: 048
  57. FERROUS FUMARATE [Concomitant]
     Active Substance: FERROUS FUMARATE
     Indication: IRON DEFICIENCY
     Dosage: 210 MG, BID
     Route: 048
     Dates: start: 2010
  58. LACTULOSE. [Concomitant]
     Active Substance: LACTULOSE
     Indication: CONSTIPATION PROPHYLAXIS
     Dosage: 15 MG, BID
     Route: 048
     Dates: start: 20150225
  59. CLARITHROMYCIN. [Concomitant]
     Active Substance: CLARITHROMYCIN
     Indication: INFECTION
     Dosage: 500 MG, BID
     Route: 048
     Dates: start: 20160102
  60. BENDROFLUMETHIAZIDE [Concomitant]
     Active Substance: BENDROFLUMETHIAZIDE
     Dosage: 5 MG, QD
     Route: 048
     Dates: start: 201512
  61. DALTEPARIN [Concomitant]
     Active Substance: DALTEPARIN
     Indication: THROMBOSIS PROPHYLAXIS
     Dosage: 5000 IU, QD
     Route: 058
     Dates: start: 20160101, end: 20160104
  62. DALTEPARIN [Concomitant]
     Active Substance: DALTEPARIN
     Dosage: 5000 IU, QD
     Route: 058
     Dates: start: 20160308, end: 20160315
  63. CO-AMOXICLAVE [Concomitant]
     Active Substance: AMOXICILLIN\CLAVULANATE POTASSIUM
     Indication: PNEUMONIA
     Dosage: 625 MG, TID
     Route: 048
     Dates: start: 20151228, end: 20151231
  64. CO-AMOXICLAVE [Concomitant]
     Active Substance: AMOXICILLIN\CLAVULANATE POTASSIUM
     Dosage: 1.2 G, UNK
     Route: 042
     Dates: start: 20160105, end: 20160105
  65. VELCADE [Suspect]
     Active Substance: BORTEZOMIB
     Dosage: 2.25 MG, UNK
     Route: 058
     Dates: start: 20151229
  66. VELCADE [Suspect]
     Active Substance: BORTEZOMIB
     Dosage: 2.25 MG, UNK
     Route: 058
     Dates: start: 20160113
  67. DARATUMUMAB [Suspect]
     Active Substance: DARATUMUMAB
     Dosage: 1220 MG, UNK
     Route: 042
  68. LANSOPRAZOLE. [Concomitant]
     Active Substance: LANSOPRAZOLE
     Indication: PROPHYLAXIS
     Dosage: 30 MG, QD
     Route: 048
     Dates: start: 2005
  69. PERINDOPRIL [Concomitant]
     Active Substance: PERINDOPRIL
     Indication: HYPERTENSION
     Dosage: 8 MG, QD
     Route: 048
     Dates: end: 20160108
  70. TAZOCIN [Concomitant]
     Active Substance: PIPERACILLIN SODIUM\TAZOBACTAM SODIUM
     Indication: INFECTION
     Dosage: 4.5 G, UNK
     Route: 042
     Dates: start: 20160101, end: 20160101
  71. LAXIDO ORANGE [Concomitant]
     Dosage: 1 UNK, UNK
     Route: 048
     Dates: start: 20160105

REACTIONS (11)
  - Acute kidney injury [Recovered/Resolved]
  - Infection [Not Recovered/Not Resolved]
  - Drug dose omission [Unknown]
  - Pneumonia [Unknown]
  - Urinary tract infection [Recovered/Resolved]
  - Sepsis [Unknown]
  - Oedema peripheral [Unknown]
  - Joint swelling [Unknown]
  - Anaemia [Recovered/Resolved]
  - Arthralgia [Recovered/Resolved]
  - Eye pruritus [Unknown]

NARRATIVE: CASE EVENT DATE: 20151201
